FAERS Safety Report 9784605 (Version 1)
Quarter: 2013Q4

REPORT INFORMATION
  Report Type: Report from Study
  Country: BE (occurrence: BE)
  Receive Date: 20131226
  Receipt Date: 20131226
  Transmission Date: 20140711
  Serious: Yes (Hospitalization)
  Sender: FDA-Public Use
  Company Number: BE-ABBVIE-13P-013-1181613-00

PATIENT
  Age: 70 Year
  Sex: Female
  Weight: 77 kg

DRUGS (3)
  1. HUMIRA [Suspect]
     Indication: RHEUMATOID ARTHRITIS
     Dates: start: 20100121
  2. HUMIRA [Suspect]
  3. ARAVA [Concomitant]
     Indication: RHEUMATOID ARTHRITIS
     Dates: start: 20060807

REACTIONS (4)
  - Erythema [Recovered/Resolved]
  - Oedema peripheral [Recovered/Resolved]
  - Erysipelas [Recovered/Resolved]
  - Pain in extremity [Recovered/Resolved]
